FAERS Safety Report 17761939 (Version 1)
Quarter: 2020Q2

REPORT INFORMATION
  Report Type: Spontaneous
  Country: US (occurrence: US)
  Receive Date: 20200508
  Receipt Date: 20200508
  Transmission Date: 20200714
  Serious: No
  Sender: FDA-Public Use
  Company Number: US-BEH-2020116858

PATIENT
  Age: 20 Year
  Sex: Female
  Weight: 93 kg

DRUGS (1)
  1. HIZENTRA [Suspect]
     Active Substance: HUMAN IMMUNOGLOBULIN G
     Indication: MYASTHENIA GRAVIS
     Dosage: 30 GRAM, QW
     Route: 058
     Dates: start: 202001

REACTIONS (6)
  - Product use in unapproved indication [Unknown]
  - Off label use [Unknown]
  - No adverse event [Unknown]
  - Rash [Unknown]
  - Burning sensation [Unknown]
  - Infusion site reaction [Unknown]

NARRATIVE: CASE EVENT DATE: 202001
